FAERS Safety Report 24200003 (Version 1)
Quarter: 2024Q3

REPORT INFORMATION
  Report Type: Spontaneous
  Country: US (occurrence: US)
  Receive Date: 20240812
  Receipt Date: 20240812
  Transmission Date: 20241016
  Serious: No
  Sender: MERCK
  Company Number: US-009507513-2407USA010955

PATIENT
  Age: 60 Year
  Sex: Female

DRUGS (1)
  1. KEYTRUDA [Suspect]
     Active Substance: PEMBROLIZUMAB
     Indication: Non-small cell lung cancer
     Dosage: IV INFUSION EVERY 3 WEEKS
     Route: 042
     Dates: start: 20210508

REACTIONS (4)
  - Headache [Unknown]
  - Dizziness [Unknown]
  - Adverse event [Unknown]
  - Incorrect product administration duration [Unknown]
